FAERS Safety Report 9880750 (Version 1)
Quarter: 2014Q1

REPORT INFORMATION
  Report Type: Spontaneous
  Country: CN (occurrence: None)
  Receive Date: 20140205
  Receipt Date: 20140205
  Transmission Date: 20141002
  Serious: Yes (Hospitalization)
  Sender: FDA-Public Use
  Company Number: 2152349

PATIENT
  Age: 31 Year
  Sex: Female

DRUGS (3)
  1. BLEOMYCIN SULFATE [Suspect]
     Indication: BLADDER NEOPLASM
     Route: 042
  2. ETOPOSIDE [Suspect]
     Indication: BLADDER NEOPLASM
     Dosage: 100 MG/M2 MILLIGRAM(S)/SQ.METER
     Route: 042
  3. CARBOPLATIN [Suspect]
     Indication: BLADDER NEOPLASM
     Dosage: AUC 5 MG/ML/MIN,UKNOWN, INTRAVENOUS
     Route: 042

REACTIONS (4)
  - Neutropenic sepsis [None]
  - Appendicitis [None]
  - Mucosal inflammation [None]
  - Haematuria [None]
